FAERS Safety Report 23426619 (Version 7)
Quarter: 2024Q3

REPORT INFORMATION
  Report Type: Spontaneous
  Country: CA (occurrence: CA)
  Receive Date: 20240122
  Receipt Date: 20240807
  Transmission Date: 20241017
  Serious: Yes (Hospitalization, Other)
  Sender: CELLTRION
  Company Number: CA-CELLTRION INC.-2024CA001212

PATIENT

DRUGS (8)
  1. INFLECTRA [Suspect]
     Active Substance: INFLIXIMAB-DYYB
     Indication: Crohn^s disease
     Dosage: 10 MG/KG, INDUCTION DOSES AT WEEK 0, 2, 6 THEN EVERY 8 WEEKS ROUNDED TO NEAREST VIAL
     Route: 042
     Dates: start: 20230616
  2. INFLECTRA [Suspect]
     Active Substance: INFLIXIMAB-DYYB
     Dosage: 10 MG/KG, INDUCTION DOSES AT WEEK 0, 2, 6 THEN EVERY 8 WEEKS ROUNDED TO NEAREST VIAL
     Route: 042
     Dates: start: 20231117
  3. INFLECTRA [Suspect]
     Active Substance: INFLIXIMAB-DYYB
     Dosage: 10 MG/KG, INDUCTION DOSES AT WEEK 0, 2, 6 THEN EVERY 8 WEEKS ROUNDED TO NEAREST VIAL AFTER 11 WEEKS
     Route: 042
     Dates: start: 20240202
  4. INFLECTRA [Suspect]
     Active Substance: INFLIXIMAB-DYYB
     Dosage: EVERY 8 WEEKS, ROUNDED TO NEAREST VIAL
     Route: 042
     Dates: start: 20240328
  5. INFLECTRA [Suspect]
     Active Substance: INFLIXIMAB-DYYB
     Dosage: EVERY 8 WEEKS, ROUNDED TO NEAREST VIAL
     Route: 042
     Dates: start: 20240531, end: 20240531
  6. INFLECTRA [Suspect]
     Active Substance: INFLIXIMAB-DYYB
     Dosage: EVERY 8 WEEKS, ROUNDED TO NEAREST VIAL
     Route: 042
     Dates: start: 20240531, end: 20240531
  7. INFLECTRA [Suspect]
     Active Substance: INFLIXIMAB-DYYB
     Dosage: EVERY 8 WEEKS, ROUNDED TO NEAREST VIAL
     Route: 042
     Dates: start: 20240726
  8. ACETAMINOPHEN [Concomitant]
     Active Substance: ACETAMINOPHEN
     Indication: Premedication
     Dosage: 1000 MG
     Route: 048
     Dates: start: 20240531

REACTIONS (9)
  - Fistula [Not Recovered/Not Resolved]
  - Hypertension [Unknown]
  - Pruritus [Recovered/Resolved]
  - Pyrexia [Recovered/Resolved]
  - Chills [Not Recovered/Not Resolved]
  - Arthralgia [Recovered/Resolved]
  - Insomnia [Not Recovered/Not Resolved]
  - Pain [Not Recovered/Not Resolved]
  - Headache [Recovered/Resolved]

NARRATIVE: CASE EVENT DATE: 20240531
